FAERS Safety Report 4283742-0 (Version None)
Quarter: 2004Q1

REPORT INFORMATION
  Report Type: 
  Country: None (occurrence: None)
  Receive Date: 20040202
  Receipt Date: 20030407
  Transmission Date: 20041129
  Serious: Yes (Hospitalization, Other)
  Sender: FDA-Public Use
  Company Number: WAES 0304USA00840

PATIENT
  Age: 60 Year
  Sex: Female
  Weight: 77 kg

DRUGS (3)
  1. [THERAPY UNSPECIFIED] [Concomitant]
  2. INSULIN [Concomitant]
  3. VIOXX [Suspect]
     Indication: SPONDYLITIS
     Route: 048
     Dates: start: 20000401, end: 20000601

REACTIONS (21)
  - ANGINA PECTORIS [None]
  - ANOXIC ENCEPHALOPATHY [None]
  - ATRIOVENTRICULAR BLOCK [None]
  - BLINDNESS [None]
  - CARDIOGENIC SHOCK [None]
  - CEREBROVASCULAR ACCIDENT [None]
  - COLITIS ISCHAEMIC [None]
  - CONSTIPATION [None]
  - CORONARY ARTERY DISEASE [None]
  - COUGH [None]
  - DIARRHOEA [None]
  - GASTRITIS [None]
  - HAEMORRHOIDS [None]
  - HEPATIC FAILURE [None]
  - ISCHAEMIA [None]
  - ISCHAEMIC CARDIOMYOPATHY [None]
  - MITRAL VALVE INCOMPETENCE [None]
  - MUSCLE TIGHTNESS [None]
  - MYOCARDIAL INFARCTION [None]
  - RENAL CYST [None]
  - THYROID DISORDER [None]
